FAERS Safety Report 13824390 (Version 2)
Quarter: 2017Q3

REPORT INFORMATION
  Report Type: Spontaneous
  Country: GB (occurrence: GB)
  Receive Date: 20170802
  Receipt Date: 20170815
  Transmission Date: 20171127
  Serious: Yes (Other)
  Sender: FDA-Public Use
  Company Number: GB-GLAXOSMITHKLINE-GB2017GSK119112

PATIENT

DRUGS (1)
  1. NICOTINE. [Suspect]
     Active Substance: NICOTINE
     Indication: DRUG ABUSE
     Dosage: 21 MG, UNK
     Route: 048

REACTIONS (2)
  - Drug abuse [Unknown]
  - Intentional product use issue [Unknown]
